FAERS Safety Report 7384472-9 (Version None)
Quarter: 2011Q1

REPORT INFORMATION
  Report Type: 
  Country: None (occurrence: None)
  Receive Date: 20110330
  Receipt Date: 20110317
  Transmission Date: 20110831
  Serious: Yes (Hospitalization)
  Sender: FDA-Public Use
  Company Number: RS-WATSON-2011-03936

PATIENT
  Age: 55 Year
  Sex: Male

DRUGS (1)
  1. TICLOPIDINE HCL [Suspect]
     Indication: ANTIPLATELET THERAPY
     Dosage: 200 MG, DAILY
     Route: 065

REACTIONS (2)
  - APLASTIC ANAEMIA [None]
  - NEUROBORRELIOSIS [None]
